FAERS Safety Report 7808989-5 (Version None)
Quarter: 2011Q4

REPORT INFORMATION
  Report Type: 
  Country: None (occurrence: None)
  Receive Date: 20111006
  Receipt Date: 20110920
  Transmission Date: 20120403
  Serious: Yes (Hospitalization, Other)
  Sender: FDA-Public Use
  Company Number: 2011MA014172

PATIENT
  Age: 61 Year
  Sex: Male

DRUGS (4)
  1. CITALOPRAM HYDROBROMIDE [Suspect]
     Indication: DEPRESSION
  2. OXYCODONE HCL [Concomitant]
  3. FLUOROURACIL [Suspect]
     Indication: RECTAL CANCER
     Dosage: 225 MG/M2/DAY;QD;IV
     Route: 042
  4. SIMVASTATIN [Concomitant]

REACTIONS (7)
  - ELECTROCARDIOGRAM ST SEGMENT ELEVATION [None]
  - SINUS BRADYCARDIA [None]
  - CREPITATIONS [None]
  - FATIGUE [None]
  - DIZZINESS [None]
  - RECTAL CANCER [None]
  - HAEMOGLOBIN DECREASED [None]
